FAERS Safety Report 6593639-9 (Version None)
Quarter: 2010Q1

REPORT INFORMATION
  Report Type: 
  Country: None (occurrence: None)
  Receive Date: 20100222
  Receipt Date: 20090925
  Transmission Date: 20100710
  Serious: No
  Sender: FDA-Public Use
  Company Number: US-BRISTOL-MYERS SQUIBB COMPANY-14793368

PATIENT
  Age: 79 Year
  Sex: Female
  Weight: 45 kg

DRUGS (8)
  1. ORENCIA [Suspect]
     Indication: RHEUMATOID ARTHRITIS
     Dosage: 2ND INF ON 9/21/09
     Dates: start: 20090908
  2. PREDNISONE [Concomitant]
  3. METHOTREXATE [Concomitant]
     Dosage: INJECTION
  4. SYNTHROID [Concomitant]
  5. VITAMIN D [Concomitant]
  6. CALCIUM [Concomitant]
  7. MULTI-VITAMIN [Concomitant]
  8. FOLIC ACID [Concomitant]

REACTIONS (1)
  - BACK PAIN [None]
